FAERS Safety Report 15884619 (Version 3)
Quarter: 2019Q4

REPORT INFORMATION
  Report Type: Spontaneous
  Country: US (occurrence: US)
  Receive Date: 20190129
  Receipt Date: 20191007
  Transmission Date: 20200122
  Serious: Yes (Hospitalization)
  Sender: FDA-Public Use
  Company Number: US-PFIZER INC-2019034546

PATIENT
  Age: 53 Year
  Sex: Male

DRUGS (3)
  1. IRINOTECAN HCL [Suspect]
     Active Substance: IRINOTECAN HYDROCHLORIDE
     Indication: COLON CANCER METASTATIC
     Dosage: UNK, CYCLIC (INFUSION)EVERY 4 WEEKS
  2. CETUXIMAB. [Suspect]
     Active Substance: CETUXIMAB
     Indication: COLON CANCER METASTATIC
     Dosage: UNK, CYCLIC, INFUSION, EVERY 4 WEEKS
  3. VEMURAFENIB. [Suspect]
     Active Substance: VEMURAFENIB
     Indication: COLON CANCER METASTATIC
     Dosage: UNK, CYCLIC, INFUSION, EVERY 4 WEEKS

REACTIONS (5)
  - Rash [Recovering/Resolving]
  - Fatigue [Recovering/Resolving]
  - Dehydration [Recovering/Resolving]
  - Diarrhoea [Recovering/Resolving]
  - Weight decreased [Recovering/Resolving]
